FAERS Safety Report 16754613 (Version 2)
Quarter: 2019Q3

REPORT INFORMATION
  Report Type: Spontaneous
  Country: TW (occurrence: TW)
  Receive Date: 20190829
  Receipt Date: 20190926
  Transmission Date: 20191005
  Serious: Yes (Hospitalization, Other)
  Sender: FDA-Public Use
  Company Number: TW-AMGEN-TWNSP2019138245

PATIENT
  Age: 51 Year
  Sex: Female

DRUGS (7)
  1. METHOTREXATE. [Concomitant]
     Active Substance: METHOTREXATE
     Indication: RHEUMATOID ARTHRITIS
     Dosage: 4 DOSAGE FORM, QWK
  2. ENBREL [Suspect]
     Active Substance: ETANERCEPT
     Dosage: 25 MILLIGRAM, AS NECESSARY
     Route: 065
  3. ENBREL [Suspect]
     Active Substance: ETANERCEPT
     Indication: RHEUMATOID ARTHRITIS
     Dosage: 25 MILLIGRAM, 2 TIMES/WK
     Route: 058
     Dates: start: 20190130, end: 20190812
  4. FOLIC ACID. [Concomitant]
     Active Substance: FOLIC ACID
     Indication: RHEUMATOID ARTHRITIS
     Dosage: 4 DOSAGE FORM, QWK
  5. ARCOXIA [Concomitant]
     Active Substance: ETORICOXIB
     Indication: RHEUMATOID ARTHRITIS
     Dosage: 1 DF, AS NEEDED (PRN)
  6. QUININE [Concomitant]
     Active Substance: QUININE
     Indication: RHEUMATOID ARTHRITIS
     Dosage: 400 MILLIGRAM, BID
  7. PREDNISOLONE. [Concomitant]
     Active Substance: PREDNISOLONE
     Indication: RHEUMATOID ARTHRITIS
     Dosage: 6 DOSAGE FORM, QWK

REACTIONS (2)
  - Off label use [Recovering/Resolving]
  - Ankle deformity [Recovering/Resolving]
